FAERS Safety Report 7245497-7 (Version None)
Quarter: 2011Q1

REPORT INFORMATION
  Report Type: 
  Country: None (occurrence: None)
  Receive Date: 20110126
  Receipt Date: 20110112
  Transmission Date: 20110831
  Serious: Yes (Hospitalization, Other)
  Sender: FDA-Public Use
  Company Number: US-ELI_LILLY_AND_COMPANY-US201008001037

PATIENT
  Sex: Female

DRUGS (3)
  1. PREDNISONE [Concomitant]
  2. FORTEO [Suspect]
     Indication: OSTEOPOROSIS
     Dosage: 20 UG, DAILY (1/D)
     Dates: start: 20100728
  3. FORTEO [Suspect]
     Dosage: 20 UG, DAILY (1/D)

REACTIONS (9)
  - MOOD SWINGS [None]
  - DECREASED APPETITE [None]
  - BURSITIS [None]
  - ARTHRALGIA [None]
  - MYALGIA [None]
  - MULTIPLE MYELOMA [None]
  - PAIN IN EXTREMITY [None]
  - DEPRESSION [None]
  - NAUSEA [None]
